FAERS Safety Report 8064247-8 (Version None)
Quarter: 2011Q4

REPORT INFORMATION
  Report Type: 
  Country: None (occurrence: None)
  Receive Date: 20111221
  Receipt Date: 20110801
  Transmission Date: 20120403
  Serious: No
  Sender: FDA-Public Use
  Company Number: 2011S1000059

PATIENT
  Age: 55 Year
  Sex: Female

DRUGS (10)
  1. BENADRYL [Concomitant]
  2. DECADRON /00016005/ [Concomitant]
  3. LISINOPRIL [Concomitant]
  4. COLCHICINE [Concomitant]
  5. FUROSEMIDE [Concomitant]
  6. KRYSTEXXA [Suspect]
     Indication: GOUT
     Dosage: 8 MG;X1; IV
     Route: 042
     Dates: start: 20110415, end: 20110415
  7. KRYSTEXXA [Suspect]
     Indication: GOUT
     Dosage: 8 MG;X1; IV
     Route: 042
     Dates: start: 20110502, end: 20110502
  8. TYLENOL (CAPLET) [Concomitant]
  9. ATENOLOL [Concomitant]
  10. METFFORMIN HYDROCHLORIDE [Concomitant]

REACTIONS (1)
  - HYPERSENSITIVITY [None]
